FAERS Safety Report 5613671-9 (Version None)
Quarter: 2008Q1

REPORT INFORMATION
  Report Type: 
  Country: None (occurrence: None)
  Receive Date: 20080130
  Receipt Date: 20060404
  Transmission Date: 20080703
  Serious: Yes (Death, Life-Threatening, Hospitalization)
  Sender: FDA-Public Use
  Company Number: US022272

PATIENT
  Age: 60 Year
  Sex: Male
  Weight: 73 kg

DRUGS (15)
  1. PROVIGIL [Suspect]
     Indication: NARCOLEPSY
     Dosage: 100 MG QAM ORAL
     Route: 048
     Dates: start: 20030517, end: 20030606
  2. GLEEVEC [Suspect]
     Indication: HYPEREOSINOPHILIC SYNDROME
     Dosage: 200 MG BID ORAL
     Route: 048
     Dates: start: 20030522, end: 20030531
  3. GLEEVEC [Suspect]
     Indication: LEUKOCYTOSIS
     Dosage: 200 MG BID ORAL
     Route: 048
     Dates: start: 20030522, end: 20030531
  4. LEVAQUIN [Suspect]
     Indication: SKIN INFECTION
     Dosage: 500MG QD ORAL
     Route: 048
     Dates: start: 20030529, end: 20030602
  5. FLAGYL [Suspect]
     Indication: SKIN INFECTION
     Dosage: 500 MG QID ORAL
     Route: 048
     Dates: start: 20030523, end: 20030530
  6. DOXEPIN HCL [Concomitant]
  7. DEMEROL [Concomitant]
  8. VERSED [Concomitant]
  9. FLOMAX [Concomitant]
  10. LIPITOR [Concomitant]
  11. PROTONIX [Concomitant]
  12. LORTAB [Concomitant]
  13. DOCUSATE [Concomitant]
  14. MORPHINE [Concomitant]
  15. ESCITALOPRAM [Concomitant]

REACTIONS (14)
  - ASTHENIA [None]
  - BLOOD PRESSURE SYSTOLIC DECREASED [None]
  - HYPEREOSINOPHILIC SYNDROME [None]
  - HYPOAESTHESIA [None]
  - LEUKOCYTOSIS [None]
  - PLEURAL EFFUSION [None]
  - PNEUMONIA [None]
  - PSORIASIS [None]
  - PYREXIA [None]
  - SKIN INFECTION [None]
  - THROMBOCYTOPENIA [None]
  - TOXIC ENCEPHALOPATHY [None]
  - TOXIC EPIDERMAL NECROLYSIS [None]
  - TRANSIENT ISCHAEMIC ATTACK [None]
